FAERS Safety Report 8917749 (Version 1)
Quarter: 2012Q4

REPORT INFORMATION
  Report Type: 
  Country: JP (occurrence: JP)
  Receive Date: 20121120
  Receipt Date: 20121120
  Transmission Date: 20130627
  Serious: Yes (Hospitalization)
  Sender: FDA-Public Use
  Company Number: JP-009507513-1207JPN001498

PATIENT
  Age: 55 Year
  Sex: Female
  Weight: 58 kg

DRUGS (10)
  1. PEGINTRON [Suspect]
     Indication: CHRONIC HEPATITIS C
     Dosage: 1.5 Microgram per kilogram, qw
     Route: 058
     Dates: start: 20120611, end: 20120624
  2. REBETOL [Suspect]
     Indication: CHRONIC HEPATITIS C
     Dosage: 400 mg, qd
     Route: 048
     Dates: start: 20120611, end: 20120624
  3. TELAPREVIR [Suspect]
     Indication: CHRONIC HEPATITIS C
     Dosage: 2250 mg, qd
     Route: 048
     Dates: start: 20120611, end: 20120615
  4. TELAPREVIR [Suspect]
     Dosage: 1500  mg, qd
     Route: 048
     Dates: start: 20120616, end: 20120624
  5. NEXIUM [Concomitant]
     Indication: GASTROOESOPHAGEAL REFLUX DISEASE
     Dosage: 20 mg, qd
     Route: 048
  6. CELECOX [Concomitant]
     Indication: ARTHRALGIA
     Dosage: 200 mg, qd
     Route: 048
     Dates: end: 20120615
  7. MUCOSTA [Concomitant]
     Indication: GASTRITIS
     Dosage: 200 mg, qd
     Route: 048
  8. MECOBALAMIN [Concomitant]
     Indication: ARTHRALGIA
     Dosage: 1500 mcg qd
     Route: 048
  9. SELARA [Concomitant]
     Indication: HYPERTENSION
     Dosage: 50 mg, qd
     Route: 048
     Dates: start: 20120626
  10. BLOPRESS [Concomitant]
     Indication: HYPERTENSION
     Dosage: 8 mg, qd
     Route: 048
     Dates: start: 20120626

REACTIONS (3)
  - Blood creatinine increased [Recovered/Resolved]
  - Vomiting [Recovered/Resolved]
  - Renal impairment [Recovered/Resolved]
